FAERS Safety Report 9549533 (Version 3)
Quarter: 2013Q4

REPORT INFORMATION
  Report Type: Spontaneous
  Country: US (occurrence: US)
  Receive Date: 20130924
  Receipt Date: 20131015
  Transmission Date: 20140711
  Serious: Yes (Hospitalization)
  Sender: FDA-Public Use
  Company Number: US-BAXTER-2013BAX036748

PATIENT
  Age: 67 Year
  Sex: Male

DRUGS (6)
  1. DIANEAL PD2 [Suspect]
     Indication: PERITONEAL DIALYSIS
     Route: 033
     Dates: start: 201304
  2. DIANEAL PD2 [Suspect]
     Route: 033
     Dates: start: 20131004, end: 20131004
  3. DIANEAL PD2 [Suspect]
     Route: 033
     Dates: start: 20131007, end: 20131007
  4. EXTRANEAL [Suspect]
     Indication: PERITONEAL DIALYSIS
     Route: 033
     Dates: start: 201304
  5. EXTRANEAL [Suspect]
     Route: 033
     Dates: start: 20131004, end: 20131004
  6. EXTRANEAL [Suspect]
     Route: 033
     Dates: start: 20131007, end: 20131007

REACTIONS (4)
  - Cardiovascular disorder [Recovering/Resolving]
  - Cardiac disorder [Unknown]
  - Multimorbidity [Unknown]
  - Blood potassium increased [Recovering/Resolving]
